FAERS Safety Report 5049341-8 (Version None)
Quarter: 2006Q3

REPORT INFORMATION
  Report Type: 
  Country: None (occurrence: None)
  Receive Date: 20060712
  Receipt Date: 20060328
  Transmission Date: 20061208
  Serious: Yes (Other)
  Sender: FDA-Public Use
  Company Number: US-GLAXOSMITHKLINE-A0599379A

PATIENT
  Age: 52 Year
  Sex: Male

DRUGS (2)
  1. HYCAMTIN [Suspect]
     Indication: DRUG USE FOR UNKNOWN INDICATION
     Route: 042
     Dates: start: 20060327
  2. NO CONCURRENT MEDICATION [Concomitant]

REACTIONS (5)
  - ABDOMINAL PAIN [None]
  - DISEASE PROGRESSION [None]
  - LIPASE INCREASED [None]
  - METASTASES TO PANCREAS [None]
  - PANCREATITIS [None]
